FAERS Safety Report 8187496-7 (Version None)
Quarter: 2012Q1

REPORT INFORMATION
  Report Type: 
  Country: None (occurrence: None)
  Receive Date: 20120217
  Receipt Date: 20110623
  Transmission Date: 20120608
  Serious: Yes (Other)
  Sender: FDA-Public Use
  Company Number: AUR-APL-2011-03774

PATIENT
  Age: 66 Year
  Sex: Male
  Weight: 73.92 kg

DRUGS (13)
  1. ZYRTEC [Concomitant]
  2. DIGOXIN [Concomitant]
  3. VERPAMIL (VERAPAMIL) [Concomitant]
  4. WARFARIN SODIUM [Concomitant]
  5. ACYCLOVIR [Concomitant]
  6. CLONAZEPAM [Concomitant]
  7. LIPITOR [Suspect]
     Indication: BLOOD CHOLESTEROL INCREASED
     Dosage: (5 MG, 1 D), ORAL
     Route: 048
  8. TESTOSTERONE [Concomitant]
  9. XALATAN [Concomitant]
  10. RESTASIS [Concomitant]
  11. SIMVASTATIN [Suspect]
     Indication: PRODUCT USED FOR UNKNOWN INDICATION
  12. AMBIEN [Concomitant]
  13. OMEPRAZOLE [Concomitant]

REACTIONS (5)
  - RHEUMATOID FACTOR INCREASED [None]
  - ASPARTATE AMINOTRANSFERASE DECREASED [None]
  - MUSCLE ENZYME INCREASED [None]
  - ASPARTATE AMINOTRANSFERASE INCREASED [None]
  - BLOOD CREATINE PHOSPHOKINASE INCREASED [None]
